FAERS Safety Report 10626413 (Version 1)
Quarter: 2014Q4

REPORT INFORMATION
  Report Type: Spontaneous
  Country: US (occurrence: US)
  Receive Date: 20141204
  Receipt Date: 20141204
  Transmission Date: 20150529
  Serious: No
  Sender: FDA-Public Use
  Company Number: US-TARO-2013P1018706

PATIENT
  Age: 42 Year
  Sex: Female
  Weight: 56.25 kg

DRUGS (5)
  1. VITAMIN B COMPLEX [Concomitant]
     Active Substance: CYANOCOBALAMIN\DEXPANTHENOL\NIACINAMIDE\PYRIDOXINE HYDROCHLORIDE\RIBOFLAVIN 5^-PHOSPHATE SODIUM\THIAMINE HYDROCHLORIDE\VITAMIN B COMPLEX
  2. TOPICORT [Suspect]
     Active Substance: DESOXIMETASONE
     Indication: PSORIASIS
     Route: 061
     Dates: start: 2013, end: 2013
  3. MULTIVITAMIN [Concomitant]
     Active Substance: VITAMINS
  4. TOPICORT [Suspect]
     Active Substance: DESOXIMETASONE
     Indication: PSORIASIS
     Route: 061
     Dates: start: 2013, end: 201307
  5. TOPICORT [Suspect]
     Active Substance: DESOXIMETASONE
     Indication: PSORIASIS
     Route: 061
     Dates: start: 201308, end: 201308

REACTIONS (2)
  - Headache [Recovered/Resolved]
  - Off label use [Recovered/Resolved]

NARRATIVE: CASE EVENT DATE: 2013
